FAERS Safety Report 10495536 (Version 1)
Quarter: 2014Q4

REPORT INFORMATION
  Report Type: Spontaneous
  Country: AR (occurrence: AR)
  Receive Date: 20141003
  Receipt Date: 20141003
  Transmission Date: 20150528
  Serious: Yes (Death)
  Sender: FDA-Public Use
  Company Number: AR-ASTRAZENECA-2014SE73704

PATIENT
  Age: 93 Year
  Sex: Male

DRUGS (1)
  1. ETIASEL [Suspect]
     Active Substance: QUETIAPINE FUMARATE
     Route: 048
     Dates: start: 201408

REACTIONS (1)
  - Death [Fatal]

NARRATIVE: CASE EVENT DATE: 20140924
